FAERS Safety Report 18795728 (Version 2)
Quarter: 2021Q1

REPORT INFORMATION
  Report Type: Spontaneous
  Country: RU (occurrence: RU)
  Receive Date: 20210127
  Receipt Date: 20210227
  Transmission Date: 20210419
  Serious: Yes (Other)
  Sender: FDA-Public Use
  Company Number: NVSC2021RU010019

PATIENT
  Age: 68 Year
  Sex: Male

DRUGS (8)
  1. TAFINLAR [Suspect]
     Active Substance: DABRAFENIB MESYLATE
     Dosage: 300 MG, QD
     Route: 048
     Dates: start: 20181219, end: 20190606
  2. TAFINLAR [Suspect]
     Active Substance: DABRAFENIB MESYLATE
     Dosage: 225 MG, QD (THREE 75 MG CAPSULES PER DAY)
     Route: 048
     Dates: start: 20191209, end: 20191227
  3. TAFINLAR [Suspect]
     Active Substance: DABRAFENIB MESYLATE
     Dosage: 225 MG, QD (THREE 75 MG CAPSULES PER DAY)
     Route: 048
     Dates: start: 20190613, end: 20190808
  4. MEKINIST [Suspect]
     Active Substance: TRAMETINIB DIMETHYL SULFOXIDE
     Dosage: 2 MG, QD
     Route: 048
     Dates: start: 20181219, end: 20190606
  5. MEKINIST [Suspect]
     Active Substance: TRAMETINIB DIMETHYL SULFOXIDE
     Indication: MALIGNANT MELANOMA
     Dosage: 2 MG, QD
     Route: 048
     Dates: start: 20181212
  6. MEKINIST [Suspect]
     Active Substance: TRAMETINIB DIMETHYL SULFOXIDE
     Dosage: 2 MG, QD
     Route: 048
     Dates: start: 20190829, end: 20191227
  7. TAFINLAR [Suspect]
     Active Substance: DABRAFENIB MESYLATE
     Dosage: 225 MG, QD (THREE 75 MG CAPSULES PER DAY)
     Route: 048
     Dates: start: 20190828
  8. TAFINLAR [Suspect]
     Active Substance: DABRAFENIB MESYLATE
     Indication: MALIGNANT MELANOMA
     Dosage: 300 MG, QD
     Route: 048
     Dates: start: 20181212

REACTIONS (13)
  - Renal disorder [Unknown]
  - Gallbladder disorder [Unknown]
  - Hepatic steatosis [Unknown]
  - Hepatic cyst [Unknown]
  - Body temperature increased [Recovered/Resolved]
  - Spleen disorder [Unknown]
  - Hepatomegaly [Unknown]
  - Metastases to bone [Unknown]
  - Cholelithiasis [Unknown]
  - Pancreatic disorder [Unknown]
  - Splenomegaly [Unknown]
  - Skin oedema [Unknown]
  - Scar [Unknown]

NARRATIVE: CASE EVENT DATE: 20190325
